FAERS Safety Report 7581851-1 (Version None)
Quarter: 2011Q2

REPORT INFORMATION
  Report Type: 
  Country: None (occurrence: None)
  Receive Date: 20110629
  Receipt Date: 20110601
  Transmission Date: 20111010
  Serious: Yes (Other)
  Sender: FDA-Public Use
  Company Number: IT-BAYER-2011-046951

PATIENT
  Age: 49 Year
  Sex: Male

DRUGS (1)
  1. ASPIRIN [Suspect]
     Indication: CHORIORETINITIS
     Dosage: DAILY DOSE 500 MG
     Route: 048
     Dates: start: 20110522, end: 20110527

REACTIONS (1)
  - GASTRITIS EROSIVE [None]
